FAERS Safety Report 25386074 (Version 1)
Quarter: 2025Q2

REPORT INFORMATION
  Report Type: Spontaneous
  Country: US (occurrence: None)
  Receive Date: 20250531
  Receipt Date: 20250531
  Transmission Date: 20250717
  Serious: No
  Sender: FDA-CTU
  Company Number: None

PATIENT
  Age: 32 Year
  Sex: Female

DRUGS (1)
  1. XYZAL [Suspect]
     Active Substance: LEVOCETIRIZINE DIHYDROCHLORIDE
     Indication: Multiple allergies

REACTIONS (3)
  - Pruritus [None]
  - Haemorrhage [None]
  - Withdrawal syndrome [None]
